FAERS Safety Report 25221306 (Version 1)
Quarter: 2025Q2

REPORT INFORMATION
  Report Type: Spontaneous
  Country: US (occurrence: US)
  Receive Date: 20250421
  Receipt Date: 20250421
  Transmission Date: 20250716
  Serious: No
  Sender: NOSTRUM
  Company Number: US-Nostrum Laboratories, Inc.-2175190

PATIENT
  Age: 64 Year
  Sex: Female

DRUGS (1)
  1. PROMETHAZINE HYDROCHLORIDE [Suspect]
     Active Substance: PROMETHAZINE HYDROCHLORIDE
     Indication: Product used for unknown indication

REACTIONS (3)
  - Diarrhoea [Recovered/Resolved]
  - Hypoglossal nerve disorder [Recovered/Resolved]
  - Vision blurred [Recovered/Resolved]
